FAERS Safety Report 9837809 (Version 1)
Quarter: 2013Q4

REPORT INFORMATION
  Report Type: Spontaneous
  Country: US (occurrence: None)
  Receive Date: 20131205
  Receipt Date: 20131205
  Transmission Date: 20140711
  Serious: Yes (Other)
  Sender: FDA-Public Use
  Company Number: 163-POMAL-13102666

PATIENT
  Sex: Male
  Weight: 71.7 kg

DRUGS (5)
  1. POMALYST (POMALIDOMIDE) (3 MILLIGRAM, CAPSULES) [Suspect]
     Indication: PLASMA CELL MYELOMA
     Route: 048
     Dates: start: 201303
  2. ASPIRIN (ACEYTLSALICYLIC ACID) (ENTERIC-COATED TABLET) [Concomitant]
  3. PERCOCET (OXYCOCET)(TABLETS) [Concomitant]
  4. ACETAMINOPHEN (PARACETAMOL)(TABLETS) [Concomitant]
  5. LIDOCAINE (LIDOCAINE)(POULTICE OR PATCH) [Concomitant]

REACTIONS (1)
  - Dyspepsia [None]
